FAERS Safety Report 13972612 (Version 2)
Quarter: 2017Q4

REPORT INFORMATION
  Report Type: Report from Study
  Country: US (occurrence: US)
  Receive Date: 20170914
  Receipt Date: 20171003
  Transmission Date: 20180321
  Serious: Yes (Hospitalization, Other)
  Sender: FDA-Public Use
  Company Number: US-GILEAD-2017-0282224

PATIENT
  Age: 73 Year
  Sex: Female
  Weight: 69.1 kg

DRUGS (12)
  1. AMBRISENTAN [Suspect]
     Active Substance: AMBRISENTAN
     Indication: CREST SYNDROME
     Dosage: 5 MG, UNK
     Route: 065
     Dates: start: 20101010
  2. LEVOTHYROXINE. [Concomitant]
     Active Substance: LEVOTHYROXINE
  3. LASIX [Concomitant]
     Active Substance: FUROSEMIDE
  4. OPSUMIT [Concomitant]
     Active Substance: MACITENTAN
  5. UPTRAVI [Concomitant]
     Active Substance: SELEXIPAG
  6. PREDNISONE. [Concomitant]
     Active Substance: PREDNISONE
  7. ADCIRCA [Suspect]
     Active Substance: TADALAFIL
     Indication: PULMONARY ARTERIAL HYPERTENSION
     Dosage: 40 MG, UNK
     Route: 048
     Dates: start: 201104, end: 20170701
  8. OXYGEN. [Concomitant]
     Active Substance: OXYGEN
  9. METOPROLOL. [Concomitant]
     Active Substance: METOPROLOL
  10. AMBRISENTAN [Suspect]
     Active Substance: AMBRISENTAN
     Indication: PULMONARY HYPERTENSION
     Dosage: 10 MG, UNK
     Route: 048
     Dates: start: 20101005, end: 20170701
  11. SILDENAFIL. [Concomitant]
     Active Substance: SILDENAFIL
  12. SPIRONOLACTONE. [Concomitant]
     Active Substance: SPIRONOLACTONE

REACTIONS (6)
  - Pulmonary arterial hypertension [Not Recovered/Not Resolved]
  - Pulmonary arterial pressure increased [Unknown]
  - Malaise [Unknown]
  - CREST syndrome [Not Recovered/Not Resolved]
  - Product use issue [Recovered/Resolved]
  - General physical health deterioration [Unknown]

NARRATIVE: CASE EVENT DATE: 20170707
